FAERS Safety Report 12507519 (Version 1)
Quarter: 2016Q2

REPORT INFORMATION
  Report Type: Spontaneous
  Country: US (occurrence: None)
  Receive Date: 20160628
  Receipt Date: 20160628
  Transmission Date: 20160815
  Serious: No
  Sender: FDA-Public Use
  Company Number: None

PATIENT

DRUGS (2)
  1. LEVETIRACETAM. [Suspect]
     Active Substance: LEVETIRACETAM
  2. VALPROATE SODIUM. [Suspect]
     Active Substance: VALPROATE SODIUM

REACTIONS (2)
  - Product label confusion [None]
  - Product packaging confusion [None]
